FAERS Safety Report 21370003 (Version 1)
Quarter: 2022Q3

REPORT INFORMATION
  Report Type: Spontaneous
  Country: US (occurrence: None)
  Receive Date: 20220922
  Receipt Date: 20220922
  Transmission Date: 20221026
  Serious: Yes (Hospitalization)
  Sender: FDA-Public Use
  Company Number: None

PATIENT
  Age: 46 Year
  Sex: Female
  Weight: 79.47 kg

DRUGS (4)
  1. SPRYCEL [Suspect]
     Active Substance: DASATINIB
     Indication: Chronic myeloid leukaemia
     Dosage: 100MG DAILY ORAL
     Route: 048
     Dates: start: 202206
  2. Anasrozole [Concomitant]
  3. Efferox XR [Concomitant]
  4. XANAX [Concomitant]
     Active Substance: ALPRAZOLAM

REACTIONS (3)
  - White blood cell count decreased [None]
  - Gastrointestinal infection [None]
  - Feeding disorder [None]
